FAERS Safety Report 6021600-1 (Version None)
Quarter: 2008Q4

REPORT INFORMATION
  Report Type: 
  Country: None (occurrence: None)
  Receive Date: 20081222
  Receipt Date: 20081104
  Transmission Date: 20090506
  Serious: No
  Sender: FDA-Public Use
  Company Number: SPV1-2008-02407

PATIENT
  Age: 38 Year
  Sex: Male
  Weight: 86.2 kg

DRUGS (2)
  1. VYVANSE [Suspect]
     Indication: ATTENTION DEFICIT/HYPERACTIVITY DISORDER
     Dosage: 50 MG, 1X/DAY;QD, ORAL : 70 MG, 1X/DAY:QD, ORAL
     Route: 048
     Dates: start: 20080801, end: 20080901
  2. VYVANSE [Suspect]
     Indication: ATTENTION DEFICIT/HYPERACTIVITY DISORDER
     Dosage: 50 MG, 1X/DAY;QD, ORAL : 70 MG, 1X/DAY:QD, ORAL
     Route: 048
     Dates: start: 20080901, end: 20081104

REACTIONS (4)
  - ANXIETY [None]
  - BLOOD PRESSURE INCREASED [None]
  - DRUG EFFECT DECREASED [None]
  - WEIGHT DECREASED [None]
